FAERS Safety Report 12415009 (Version 14)
Quarter: 2020Q2

REPORT INFORMATION
  Report Type: Spontaneous
  Country: CA (occurrence: CA)
  Receive Date: 20160530
  Receipt Date: 20200622
  Transmission Date: 20200713
  Serious: Yes (Other)
  Sender: FDA-Public Use
  Company Number: CA-ROCHE-1765541

PATIENT
  Age: 54 Year
  Sex: Female

DRUGS (14)
  1. XOLAIR [Suspect]
     Active Substance: OMALIZUMAB
     Dosage: UNK
     Route: 058
     Dates: start: 20161115
  2. XOLAIR [Suspect]
     Active Substance: OMALIZUMAB
     Dosage: UNK
     Route: 058
     Dates: start: 20170627
  3. XOLAIR [Suspect]
     Active Substance: OMALIZUMAB
     Route: 058
  4. ADVAIR HFA [Concomitant]
     Active Substance: FLUTICASONE PROPIONATE\SALMETEROL XINAFOATE
     Indication: PRODUCT USED FOR UNKNOWN INDICATION
     Dosage: 500 MG, BID
     Route: 065
  5. XOLAIR [Suspect]
     Active Substance: OMALIZUMAB
     Indication: ASTHMA
     Route: 058
     Dates: start: 20141210
  6. SYMBICORT [Concomitant]
     Active Substance: BUDESONIDE\FORMOTEROL FUMARATE DIHYDRATE
     Indication: PRODUCT USED FOR UNKNOWN INDICATION
     Dosage: 200 MG, BID
     Route: 065
  7. XOLAIR [Suspect]
     Active Substance: OMALIZUMAB
     Route: 058
     Dates: start: 20150406
  8. XOLAIR [Suspect]
     Active Substance: OMALIZUMAB
     Dosage: UNK
     Route: 058
     Dates: start: 20170529
  9. XOLAIR [Suspect]
     Active Substance: OMALIZUMAB
     Route: 058
     Dates: start: 20181016
  10. SINGULAIR [Concomitant]
     Active Substance: MONTELUKAST SODIUM
     Indication: PRODUCT USED FOR UNKNOWN INDICATION
     Route: 065
  11. XOLAIR [Suspect]
     Active Substance: OMALIZUMAB
     Route: 058
     Dates: start: 201512
  12. XOLAIR [Suspect]
     Active Substance: OMALIZUMAB
     Dosage: UNK
     Route: 058
     Dates: start: 20160309
  13. XOLAIR [Suspect]
     Active Substance: OMALIZUMAB
     Dosage: UNK
     Route: 058
     Dates: start: 20160506
  14. XOLAIR [Suspect]
     Active Substance: OMALIZUMAB
     Dosage: UNK
     Route: 058
     Dates: start: 20180724

REACTIONS (29)
  - Cough [Recovering/Resolving]
  - Diabetes mellitus [Unknown]
  - Lung disorder [Unknown]
  - Malaise [Unknown]
  - Conjunctivitis allergic [Unknown]
  - Lower respiratory tract infection [Unknown]
  - Smoke sensitivity [Unknown]
  - Perfume sensitivity [Unknown]
  - Arthralgia [Unknown]
  - Chest discomfort [Recovering/Resolving]
  - Aphonia [Unknown]
  - Dyspnoea [Recovering/Resolving]
  - Rhinorrhoea [Unknown]
  - Nasal congestion [Unknown]
  - Rhinitis [Unknown]
  - Upper respiratory tract infection [Recovering/Resolving]
  - Asthma [Unknown]
  - Hypoventilation [Unknown]
  - Pyrexia [Unknown]
  - Headache [Not Recovered/Not Resolved]
  - Feeling hot [Recovered/Resolved]
  - Pain [Unknown]
  - Myalgia [Unknown]
  - Body temperature decreased [Unknown]
  - Seasonal allergy [Unknown]
  - Productive cough [Recovering/Resolving]
  - Respiratory tract congestion [Unknown]
  - Spinal fracture [Unknown]
  - Wheezing [Unknown]

NARRATIVE: CASE EVENT DATE: 2015
